FAERS Safety Report 9839919 (Version 1)
Quarter: 2014Q1

REPORT INFORMATION
  Report Type: Spontaneous
  Country: US (occurrence: US)
  Receive Date: 20140124
  Receipt Date: 20140124
  Transmission Date: 20141002
  Serious: Yes (Hospitalization)
  Sender: FDA-Public Use
  Company Number: US-SUN PHARMACEUTICAL INDUSTRIES LTD-2014SUN00073

PATIENT
  Sex: 0

DRUGS (9)
  1. IMIPRAMINE HYDROCHLORIDE TABLETS, USP 10 MG [Suspect]
     Indication: PRODUCT USED FOR UNKNOWN INDICATION
     Dosage: UNK
     Route: 065
     Dates: end: 201305
  2. NAMENDA 5 MG TABLETS [Suspect]
     Indication: MEMORY IMPAIRMENT
     Dosage: 5 MG, QD
     Route: 048
     Dates: start: 20130509, end: 20130515
  3. NAMENDA 5 MG TABLETS [Suspect]
     Indication: DEMENTIA ALZHEIMER^S TYPE
     Dosage: 5 MG, BID
     Route: 048
     Dates: start: 20130516, end: 20130522
  4. NAMENDA 5 MG TABLETS [Suspect]
     Dosage: 5 MG IN AM, 10 MG IN PM
     Route: 048
     Dates: start: 20130523, end: 201305
  5. NAMENDA 5 MG TABLETS [Suspect]
     Dosage: 10 MG, BID
     Route: 048
     Dates: start: 201305
  6. CITALOPRAM [Concomitant]
     Dosage: 40 MG, QD
  7. CITALOPRAM [Concomitant]
     Dosage: 20 UNK, UNK
  8. RITALIN [Concomitant]
     Indication: NARCOLEPSY
  9. PAXIL [Concomitant]
     Indication: ANXIETY
     Dosage: UNK

REACTIONS (4)
  - Cataplexy [Recovered/Resolved]
  - Constipation [Unknown]
  - Confusional state [Unknown]
  - Agitation [Unknown]
